FAERS Safety Report 21890962 (Version 1)
Quarter: 2023Q1

REPORT INFORMATION
  Report Type: Spontaneous
  Country: US (occurrence: None)
  Receive Date: 20230119
  Receipt Date: 20230119
  Transmission Date: 20230417
  Serious: No
  Sender: FDA-Public Use
  Company Number: None

PATIENT
  Age: 77 Year
  Sex: Female
  Weight: 56.25 kg

DRUGS (1)
  1. GABAPENTIN [Suspect]
     Active Substance: GABAPENTIN
     Indication: Sciatica
     Dates: start: 20221006, end: 20221024

REACTIONS (7)
  - Dizziness [None]
  - Mood altered [None]
  - Vision blurred [None]
  - Disturbance in attention [None]
  - Weight increased [None]
  - Hunger [None]
  - Dizziness [None]

NARRATIVE: CASE EVENT DATE: 20221006
